FAERS Safety Report 8604147-5 (Version None)
Quarter: 2012Q3

REPORT INFORMATION
  Report Type: 
  Country: None (occurrence: None)
  Receive Date: 20120806
  Receipt Date: 20120723
  Transmission Date: 20120928
  Serious: Yes (Hospitalization)
  Sender: FDA-Public Use
  Company Number: 2012MA009362

PATIENT
  Age: 48 Year
  Sex: Male

DRUGS (7)
  1. RANOLAZINE [Suspect]
     Indication: ANGINA PECTORIS
     Dosage: 375 MG;BID;PO
     Route: 048
  2. DILTIAZEM [Concomitant]
  3. NITROGLYCERIN [Concomitant]
  4. NICORANDIL [Concomitant]
  5. TRINITRATE [Concomitant]
  6. ALBUTEROL SULATE [Concomitant]
  7. DILTIAZEM HYDROCHLORIDE [Suspect]
     Indication: ANGINA PECTORIS
     Dosage: 180 MG;BID;PO
     Route: 048
     Dates: start: 20120424, end: 20120430

REACTIONS (4)
  - INSOMNIA [None]
  - CHEST PAIN [None]
  - FEELING ABNORMAL [None]
  - MUSCLE TWITCHING [None]
